FAERS Safety Report 19845760 (Version 1)
Quarter: 2021Q3

REPORT INFORMATION
  Report Type: Spontaneous
  Country: CA (occurrence: CA)
  Receive Date: 20210916
  Receipt Date: 20210916
  Transmission Date: 20211014
  Serious: Yes (Life-Threatening, Hospitalization, Other)
  Sender: FDA-Public Use
  Company Number: CA-PFIZER INC-202101190582

PATIENT
  Age: 67 Year
  Sex: Female

DRUGS (12)
  1. PREDNISONE. [Concomitant]
     Active Substance: PREDNISONE
     Dosage: UNK
  2. LOSARTAN. [Concomitant]
     Active Substance: LOSARTAN
     Dosage: UNK
  3. FELODIPINE. [Concomitant]
     Active Substance: FELODIPINE
     Dosage: UNK
  4. XELJANZ [Suspect]
     Active Substance: TOFACITINIB CITRATE
     Indication: MYOSITIS
  5. URSODIOL. [Concomitant]
     Active Substance: URSODIOL
     Dosage: UNK
  6. XELJANZ [Suspect]
     Active Substance: TOFACITINIB CITRATE
     Indication: PULMONARY SARCOIDOSIS
     Dosage: UNK
     Route: 048
  7. CALCIUM [Concomitant]
     Active Substance: CALCIUM
     Dosage: UNK
  8. RABEPRAZOLE [Concomitant]
     Active Substance: RABEPRAZOLE
     Dosage: UNK
  9. MULTIPLE VITAMINS [Suspect]
     Active Substance: VITAMINS
     Dosage: UNK
  10. BISOPROLOL [Concomitant]
     Active Substance: BISOPROLOL
     Dosage: UNK
  11. FUROSEMIDE. [Concomitant]
     Active Substance: FUROSEMIDE
     Dosage: UNK
     Route: 065
  12. VITAMIN D [VITAMIN D NOS] [Concomitant]
     Active Substance: VITAMIN D NOS
     Dosage: UNK

REACTIONS (2)
  - Off label use [Unknown]
  - Atrial thrombosis [Unknown]
